FAERS Safety Report 25767750 (Version 1)
Quarter: 2025Q3

REPORT INFORMATION
  Report Type: Spontaneous
  Country: US (occurrence: None)
  Receive Date: 20250905
  Receipt Date: 20250905
  Transmission Date: 20251020
  Serious: Yes (Hospitalization)
  Sender: FDA-CTU
  Company Number: None

PATIENT
  Age: 57 Year
  Sex: Female

DRUGS (1)
  1. XDEMVY [Suspect]
     Active Substance: LOTILANER
     Indication: Ocular demodicosis
     Dosage: FREQUENCY : TWICE A DAY;?
     Route: 047
     Dates: start: 20241224

REACTIONS (4)
  - Animal bite [None]
  - Mobility decreased [None]
  - Wound [None]
  - Wrong technique in device usage process [None]

NARRATIVE: CASE EVENT DATE: 20250830
